FAERS Safety Report 9731403 (Version 1)
Quarter: 2013Q4

REPORT INFORMATION
  Report Type: Spontaneous
  Country: US (occurrence: None)
  Receive Date: 20131204
  Receipt Date: 20131204
  Transmission Date: 20140711
  Serious: Yes (Hospitalization)
  Sender: FDA-Public Use
  Company Number: None

PATIENT
  Age: 47 Year
  Sex: Female
  Weight: 78.93 kg

DRUGS (6)
  1. PRAVASTATIN SODIUM [Suspect]
     Indication: BLOOD CHOLESTEROL INCREASED
     Dosage: 1 TAB
     Route: 048
  2. LORATADINE [Concomitant]
  3. OMEPRAZOLE [Concomitant]
  4. ASPIRIN [Concomitant]
  5. CHOLESTYRAMINE [Concomitant]
  6. PRILOSEC [Concomitant]

REACTIONS (12)
  - Muscle spasms [None]
  - Migraine [None]
  - Amnesia [None]
  - Pain [None]
  - Oedema peripheral [None]
  - Balance disorder [None]
  - Asthenia [None]
  - Muscular weakness [None]
  - Speech disorder [None]
  - Malaise [None]
  - Muscle spasms [None]
  - Transient ischaemic attack [None]
